APPROVED DRUG PRODUCT: PHYTONADIONE
Active Ingredient: PHYTONADIONE
Strength: 1MG/0.5ML
Dosage Form/Route: INJECTABLE;INJECTION
Application: A216601 | Product #001 | TE Code: AB
Applicant: AMNEAL EU LTD
Approved: Nov 4, 2025 | RLD: No | RS: No | Type: RX